FAERS Safety Report 5057338-7 (Version None)
Quarter: 2006Q3

REPORT INFORMATION
  Report Type: 
  Country: None (occurrence: None)
  Receive Date: 20060721
  Receipt Date: 20050818
  Transmission Date: 20061208
  Serious: No
  Sender: FDA-Public Use
  Company Number: US-GLAXOSMITHKLINE-A0570845A

PATIENT
  Age: 75 Year
  Sex: Female

DRUGS (7)
  1. AVANDIA [Suspect]
     Dosage: 2MG PER DAY
     Route: 048
     Dates: start: 20050701
  2. GLUCOPHAGE [Suspect]
     Dosage: 2.5MG PER DAY
     Route: 048
     Dates: start: 20050501, end: 20050701
  3. LISINOPRIL [Concomitant]
  4. GLYBURIDE [Concomitant]
  5. ATENOLOL [Concomitant]
  6. HYDROCHLOROTHIAZIDE [Concomitant]
  7. DIGOXIN [Concomitant]

REACTIONS (3)
  - HYPOAESTHESIA [None]
  - RASH [None]
  - SKIN EXFOLIATION [None]
